FAERS Safety Report 18727516 (Version 2)
Quarter: 2021Q1

REPORT INFORMATION
  Report Type: Spontaneous
  Country: JP (occurrence: JP)
  Receive Date: 20210111
  Receipt Date: 20210217
  Transmission Date: 20210419
  Serious: Yes (Hospitalization, Other)
  Sender: FDA-Public Use
  Company Number: JP-PFIZER INC-2021006540

PATIENT
  Age: 71 Year
  Sex: Female
  Weight: 52 kg

DRUGS (16)
  1. METHOTREXATE. [Suspect]
     Active Substance: METHOTREXATE
     Dosage: 38 MG, CYCLIC
     Route: 041
     Dates: start: 20200714
  2. EXAL [VINBLASTINE SULFATE] [Suspect]
     Active Substance: VINBLASTINE SULFATE
     Dosage: 3.8 MG, CYCLIC
     Route: 041
     Dates: start: 20200715
  3. NEXIUM [Concomitant]
     Active Substance: ESOMEPRAZOLE MAGNESIUM
     Dosage: UNK
  4. MUCODYNE [Concomitant]
     Active Substance: CARBOCYSTEINE
     Dosage: UNK
  5. ONE ALPHA [Concomitant]
     Active Substance: ALFACALCIDOL
     Dosage: UNK
  6. TARLIGE [Concomitant]
     Active Substance: MIROGABALIN BESYLATE
     Dosage: UNK
  7. SYMPROIC [Concomitant]
     Active Substance: NALDEMEDINE
     Dosage: UNK
  8. AIMIX [Concomitant]
     Active Substance: AMLODIPINE BESYLATE\IRBESARTAN
     Dosage: UNK
  9. MAGMITT [Concomitant]
     Active Substance: MAGNESIUM OXIDE
     Dosage: UNK
  10. G LASTA [Suspect]
     Active Substance: PEGFILGRASTIM
     Dosage: 3.6 MG, CYCLIC
     Route: 058
     Dates: start: 20200715
  11. SUINY [Concomitant]
     Active Substance: ANAGLIPTIN
     Dosage: UNK
  12. LIVALO [Concomitant]
     Active Substance: PITAVASTATIN CALCIUM
     Dosage: UNK
  13. CALONAL [Concomitant]
     Active Substance: ACETAMINOPHEN
     Dosage: UNK
  14. PANTETHINE [Concomitant]
     Active Substance: PANTETHINE
     Dosage: UNK
  15. OXYCONTIN TR [Concomitant]
     Active Substance: OXYCODONE HYDROCHLORIDE
     Dosage: UNK
  16. CALCIUM LACTATE [Concomitant]
     Active Substance: CALCIUM LACTATE
     Dosage: UNK

REACTIONS (5)
  - C-reactive protein increased [Recovering/Resolving]
  - White blood cell count increased [Recovering/Resolving]
  - Lymphangiosis carcinomatosa [Recovering/Resolving]
  - Interstitial lung disease [Recovering/Resolving]
  - Lymphocyte stimulation test positive [Recovering/Resolving]

NARRATIVE: CASE EVENT DATE: 20200728
